FAERS Safety Report 9324835 (Version 3)
Quarter: 2013Q4

REPORT INFORMATION
  Report Type: Spontaneous
  Country: US (occurrence: US)
  Receive Date: 20130603
  Receipt Date: 20131206
  Transmission Date: 20140711
  Serious: Yes (Hospitalization)
  Sender: FDA-Public Use
  Company Number: US-B.I. PHARMACEUTICALS,INC./RIDGEFIELD-2013-BI-15454BP

PATIENT
  Sex: Female
  Weight: 50.8 kg

DRUGS (16)
  1. PRADAXA [Suspect]
     Indication: ANTICOAGULANT THERAPY
     Dosage: 300 MG
     Route: 048
     Dates: start: 20110622, end: 20120216
  2. PRADAXA [Suspect]
     Indication: ATRIAL FIBRILLATION
  3. ATENOLOL [Concomitant]
     Dates: start: 20110831
  4. MULTAQ [Concomitant]
     Dates: start: 20110509
  5. ARMOUR THYROID [Concomitant]
     Dates: start: 201111
  6. ESTRADIOL [Concomitant]
  7. TRAZODONE [Concomitant]
  8. AMBIEN [Concomitant]
  9. OXYCODONE [Concomitant]
  10. CELEBREX [Concomitant]
  11. PREMARIN CREAM [Concomitant]
  12. VENTOLIN [Concomitant]
  13. LISINOPRIL [Concomitant]
  14. ELMIRON [Concomitant]
  15. VITAMINS [Concomitant]
  16. HERBALS [Concomitant]

REACTIONS (4)
  - Splenic rupture [Unknown]
  - Anaemia [Unknown]
  - Haemangioma [Unknown]
  - Fall [Unknown]
